FAERS Safety Report 6918859-2 (Version None)
Quarter: 2010Q3

REPORT INFORMATION
  Report Type: 
  Country: None (occurrence: None)
  Receive Date: 20100811
  Receipt Date: 20100712
  Transmission Date: 20110219
  Serious: No
  Sender: FDA-Public Use
  Company Number: US-TYCO HEALTHCARE/MALLINCKRODT-T201001606

PATIENT
  Age: 54 Year
  Sex: Female

DRUGS (3)
  1. ACETAMINOPHEN AND HYDROCODONE BITARTRATE [Suspect]
     Indication: PAIN
     Dosage: 2 TABLETS Q 8 HOURS
     Route: 048
     Dates: start: 20100301, end: 20100621
  2. MORPHINE SULFATE [Suspect]
     Indication: PAIN
     Dosage: 30 MG, BID
     Route: 048
     Dates: start: 20100301, end: 20100401
  3. DILAUDID [Suspect]
     Indication: PAIN
     Dosage: 1-2 TABLETS Q 6 HRS PRN
     Route: 048
     Dates: start: 20100621

REACTIONS (5)
  - ABDOMINAL DISTENSION [None]
  - CONSTIPATION [None]
  - MALAISE [None]
  - NAUSEA [None]
  - PHOTOSENSITIVITY REACTION [None]
